FAERS Safety Report 10012140 (Version 1)
Quarter: 2014Q1

REPORT INFORMATION
  Report Type: Spontaneous
  Country: US (occurrence: None)
  Receive Date: 20140304
  Receipt Date: 20140304
  Transmission Date: 20141002
  Serious: Yes (Other)
  Sender: FDA-Public Use
  Company Number: RB-59020-2013

PATIENT
  Sex: Female

DRUGS (2)
  1. SUBOXONE [Suspect]
     Indication: PRODUCT USED FOR UNKNOWN INDICATION
     Dosage: DOSING DETAILS UNKNOWN
  2. HEROIN [Suspect]
     Dosage: DOSING DETAILS UNKNOWN

REACTIONS (9)
  - Intentional drug misuse [None]
  - Drug dependence [None]
  - Convulsion [None]
  - Feeling abnormal [None]
  - Hyperhidrosis [None]
  - Vomiting [None]
  - Tremor [None]
  - Adverse event [None]
  - Wrong technique in drug usage process [None]
